FAERS Safety Report 7812837 (Version 3)
Quarter: 2014Q1

REPORT INFORMATION
  Report Type: Report from Study
  Country: US (occurrence: US)
  Receive Date: 20110215
  Receipt Date: 20140325
  Transmission Date: 20141002
  Serious: Yes (Hospitalization, Other)
  Sender: FDA-Public Use
  Company Number: US-ALEXION-A201100163

PATIENT
  Age: 35 Year
  Sex: Female

DRUGS (20)
  1. SOLIRIS [Suspect]
     Indication: PAROXYSMAL NOCTURNAL HAEMOGLOBINURIA
     Dosage: 600 MG, UNK
     Route: 042
     Dates: start: 20100603
  2. SOLIRIS [Suspect]
     Dosage: 900 MG, Q2W
     Route: 042
     Dates: start: 20100701
  3. BENTYL [Concomitant]
     Dosage: UNK
     Route: 048
  4. ESTRACE [Concomitant]
     Dosage: UNK
     Route: 048
  5. KLONOPIN [Concomitant]
     Dosage: UNK
     Route: 048
  6. SYNTHROID [Concomitant]
     Dosage: UNK
     Route: 048
  7. FOLIC ACID [Concomitant]
     Dosage: UNK
     Route: 048
  8. PREMARIN                           /00073001/ [Concomitant]
     Dosage: UNK
  9. ATIVAN [Concomitant]
  10. PRISTIQ [Concomitant]
  11. CLARITIN                           /00917501/ [Concomitant]
  12. VALTREX [Concomitant]
  13. DRISDOL [Concomitant]
  14. VITAMIN E                          /00110501/ [Concomitant]
  15. NEURONTIN [Concomitant]
  16. COLAZAL [Concomitant]
  17. VICODIN [Concomitant]
  18. FISH OIL [Concomitant]
  19. VITAMIN B12                        /00056201/ [Concomitant]
  20. ESTRIN [Concomitant]

REACTIONS (5)
  - Intestinal resection [Unknown]
  - Bladder prolapse [Unknown]
  - Diarrhoea [Unknown]
  - Cystitis [Unknown]
  - Fatigue [Unknown]
